FAERS Safety Report 19645353 (Version 1)
Quarter: 2021Q3

REPORT INFORMATION
  Report Type: Spontaneous
  Country: US (occurrence: US)
  Receive Date: 20210731
  Receipt Date: 20210731
  Transmission Date: 20211014
  Serious: No
  Sender: FDA-Public Use
  Company Number: None

PATIENT
  Age: 37 Year
  Sex: Female
  Weight: 96.75 kg

DRUGS (1)
  1. KRATOM [Suspect]
     Active Substance: HERBALS\MITRAGYNINE
     Indication: PAIN

REACTIONS (2)
  - Drug dependence [None]
  - Withdrawal syndrome [None]

NARRATIVE: CASE EVENT DATE: 20180601
